FAERS Safety Report 19377255 (Version 1)
Quarter: 2021Q2

REPORT INFORMATION
  Report Type: Report from Study
  Country: US (occurrence: US)
  Receive Date: 20210604
  Receipt Date: 20210604
  Transmission Date: 20210717
  Serious: Yes (Hospitalization)
  Sender: FDA-Public Use
  Company Number: US-GILEAD-2021-0534354

PATIENT
  Age: 49 Year
  Sex: Female

DRUGS (12)
  1. ALLOPURINOL. [Concomitant]
     Active Substance: ALLOPURINOL
  2. MILK THISTLE [SILYBUM MARIANUM] [Concomitant]
     Active Substance: DIETARY SUPPLEMENT\HERBALS\MILK THISTLE
  3. SELENIUM [Concomitant]
     Active Substance: SELENIUM
  4. MEPRON [METAMIZOLE SODIUM] [Concomitant]
     Active Substance: METAMIZOLE SODIUM
  5. VALACICLOVIR [Concomitant]
     Active Substance: VALACYCLOVIR HYDROCHLORIDE
  6. IDELALISIB [Suspect]
     Active Substance: IDELALISIB
     Indication: FOLLICULAR LYMPHOMA
     Dosage: 150 MG, BID
     Route: 048
     Dates: start: 20210507, end: 20210529
  7. ESTROGEN NOS;PROGESTERONE [Concomitant]
     Active Substance: ESTROGENS\PROGESTERONE
  8. FENTANYL. [Concomitant]
     Active Substance: FENTANYL
  9. SERRATIOPEPTIDASE [Concomitant]
     Active Substance: SERRAPEPTASE
  10. CARNITINE [Concomitant]
     Active Substance: CARNITINE
  11. FLUCONAZOLE. [Concomitant]
     Active Substance: FLUCONAZOLE
  12. RESVERATROL [Concomitant]
     Active Substance: DIETARY SUPPLEMENT\RESVERATROL

REACTIONS (5)
  - Stomatitis [Unknown]
  - Infection [Recovering/Resolving]
  - Neutropenia [Unknown]
  - Lymphadenopathy [Unknown]
  - Pyrexia [Unknown]

NARRATIVE: CASE EVENT DATE: 20210530
